FAERS Safety Report 13649036 (Version 1)
Quarter: 2017Q2

REPORT INFORMATION
  Report Type: Spontaneous
  Country: US (occurrence: US)
  Receive Date: 20170613
  Receipt Date: 20170613
  Transmission Date: 20170830
  Serious: Yes (Other)
  Sender: FDA-Public Use
  Company Number: US-TARO-2017TAR00465

PATIENT
  Sex: Male

DRUGS (2)
  1. UNSPECIFIED MEDICATIONS [Suspect]
     Active Substance: UNSPECIFIED INGREDIENT
  2. AMIODARONE HCL TABLET 200 MG [Suspect]
     Active Substance: AMIODARONE HYDROCHLORIDE
     Indication: ATRIAL FIBRILLATION
     Dosage: UNK
     Route: 048
     Dates: start: 201602

REACTIONS (19)
  - Pulmonary hypertension [Unknown]
  - Renal injury [Unknown]
  - Liver function test abnormal [Unknown]
  - Visual impairment [Unknown]
  - Rash [Unknown]
  - Restlessness [Unknown]
  - Irritability [Unknown]
  - Anaemia [Unknown]
  - Off label use [Unknown]
  - Asthenia [Unknown]
  - Insomnia [Unknown]
  - Hypothyroidism [Unknown]
  - Cough [Unknown]
  - Fatigue [Unknown]
  - Dyspnoea [Unknown]
  - Macular degeneration [Unknown]
  - Chest pain [Unknown]
  - Oedema [Unknown]
  - Weight decreased [Unknown]

NARRATIVE: CASE EVENT DATE: 201606
